FAERS Safety Report 5068211-2 (Version None)
Quarter: 2006Q3

REPORT INFORMATION
  Report Type: 
  Country: None (occurrence: None)
  Receive Date: 20060802
  Receipt Date: 20050603
  Transmission Date: 20061208
  Serious: No
  Sender: FDA-Public Use
  Company Number: US-BRISTOL-MYERS SQUIBB COMPANY-12993358

PATIENT
  Age: 78 Year
  Sex: Female
  Weight: 79 kg

DRUGS (8)
  1. COUMADIN [Suspect]
  2. ARICEPT [Concomitant]
  3. CARBACHOL [Concomitant]
  4. FOSINOPRIL SODIUM [Concomitant]
  5. LIPITOR [Concomitant]
  6. NORVASC [Concomitant]
  7. TOPROL-XL [Concomitant]
  8. THERAPEUTIC MINERAL ICE [Concomitant]
     Indication: BACK PAIN

REACTIONS (1)
  - INTERNATIONAL NORMALISED RATIO INCREASED [None]
